FAERS Safety Report 14066922 (Version 1)
Quarter: 2017Q4

REPORT INFORMATION
  Report Type: Spontaneous
  Country: US (occurrence: None)
  Receive Date: 20171006
  Receipt Date: 20171006
  Transmission Date: 20180321
  Serious: Yes (Hospitalization)
  Sender: FDA-Public Use
  Company Number: None

PATIENT
  Age: 1 Month
  Sex: Female
  Weight: 110 kg

DRUGS (4)
  1. 5-FU [Suspect]
     Active Substance: FLUOROURACIL
  2. FOLINIC ACID [Suspect]
     Active Substance: LEUCOVORIN
  3. ABRAXANE [Suspect]
     Active Substance: PACLITAXEL
     Indication: PANCREATIC CARCINOMA
     Route: 042
     Dates: start: 20170922, end: 20171004
  4. OXALIPLATIN. [Suspect]
     Active Substance: OXALIPLATIN

REACTIONS (1)
  - Depression [None]

NARRATIVE: CASE EVENT DATE: 20170929
